FAERS Safety Report 12661775 (Version 2)
Quarter: 2016Q3

REPORT INFORMATION
  Report Type: Spontaneous
  Country: AU (occurrence: AU)
  Receive Date: 20160817
  Receipt Date: 20160825
  Transmission Date: 20161109
  Serious: No
  Sender: FDA-Public Use
  Company Number: AU-SA-2016SA148723

PATIENT
  Sex: Female

DRUGS (1)
  1. CLEXANE [Suspect]
     Active Substance: ENOXAPARIN SODIUM
     Indication: THROMBOSIS PROPHYLAXIS
     Dosage: CLEXANE (ENOXAPARIN SODIUM) 20MG
     Route: 051

REACTIONS (2)
  - Injection site haemorrhage [Unknown]
  - Bleeding time prolonged [Unknown]
